FAERS Safety Report 12438351 (Version 4)
Quarter: 2016Q3

REPORT INFORMATION
  Report Type: Spontaneous
  Country: JP (occurrence: JP)
  Receive Date: 20160606
  Receipt Date: 20160930
  Transmission Date: 20161109
  Serious: Yes (Life-Threatening, Disabling, Other)
  Sender: FDA-Public Use
  Company Number: JP-009507513-1410JPN008738

PATIENT
  Age: 51 Year
  Sex: Male
  Weight: 53 kg

DRUGS (1)
  1. PROPECIA [Suspect]
     Active Substance: FINASTERIDE
     Indication: ANDROGENETIC ALOPECIA
     Dosage: 1MG, QD
     Route: 048
     Dates: start: 20140909, end: 20141010

REACTIONS (10)
  - Suicidal ideation [Not Recovered/Not Resolved]
  - Weight increased [Recovering/Resolving]
  - Depressive symptom [Recovering/Resolving]
  - Erectile dysfunction [Not Recovered/Not Resolved]
  - Drug dose omission [Unknown]
  - Drug withdrawal syndrome [Not Recovered/Not Resolved]
  - Libido decreased [Not Recovered/Not Resolved]
  - Visual acuity reduced [Not Recovered/Not Resolved]
  - Tinnitus [Not Recovered/Not Resolved]
  - Sleep disorder [Recovering/Resolving]

NARRATIVE: CASE EVENT DATE: 2014
